FAERS Safety Report 7082135-0 (Version None)
Quarter: 2010Q4

REPORT INFORMATION
  Report Type: 
  Country: None (occurrence: None)
  Receive Date: 20101103
  Receipt Date: 20101021
  Transmission Date: 20110411
  Serious: Yes (Other)
  Sender: FDA-Public Use
  Company Number: CH-GENENTECH-308599

PATIENT
  Age: 77 Year
  Sex: Male

DRUGS (16)
  1. LUCENTIS [Suspect]
     Indication: MACULAR DEGENERATION
     Dosage: 0.5 MG, UNK
     Route: 031
     Dates: start: 20091201
  2. LUCENTIS [Suspect]
     Dosage: 0.5 MG, UNK
     Route: 031
  3. LUCENTIS [Suspect]
     Dosage: 0.5 MG, UNK
     Route: 031
  4. LUCENTIS [Suspect]
     Dosage: 0.5 MG, UNK
     Route: 031
  5. LUCENTIS [Suspect]
     Dosage: 0.5 MG, UNK
     Route: 031
  6. LUCENTIS [Suspect]
     Dosage: 0.5 MG, UNK
     Route: 031
  7. LUCENTIS [Suspect]
     Dosage: 0.5 MG, UNK
     Route: 031
     Dates: start: 20100727
  8. SINTROM [Concomitant]
     Indication: PRODUCT USED FOR UNKNOWN INDICATION
     Dosage: UNK
     Dates: start: 20070701
  9. SODIPRYL [Concomitant]
     Indication: PRODUCT USED FOR UNKNOWN INDICATION
  10. SYMFONA N [Concomitant]
     Indication: PRODUCT USED FOR UNKNOWN INDICATION
  11. EXELON [Concomitant]
     Indication: PRODUCT USED FOR UNKNOWN INDICATION
     Dosage: UNK PG, UNK
  12. VITALUX [Concomitant]
     Indication: PRODUCT USED FOR UNKNOWN INDICATION
  13. NEUPRO [Concomitant]
     Indication: PRODUCT USED FOR UNKNOWN INDICATION
  14. COVERSUM COMBI [Concomitant]
     Indication: PRODUCT USED FOR UNKNOWN INDICATION
  15. MOTILIUM [Concomitant]
     Indication: PRODUCT USED FOR UNKNOWN INDICATION
  16. OXYBUTYNIN [Concomitant]
     Indication: PRODUCT USED FOR UNKNOWN INDICATION

REACTIONS (1)
  - TRANSIENT ISCHAEMIC ATTACK [None]
